FAERS Safety Report 20691350 (Version 1)
Quarter: 2022Q2

REPORT INFORMATION
  Report Type: Spontaneous
  Country: US (occurrence: None)
  Receive Date: 20220406
  Receipt Date: 20220406
  Transmission Date: 20220721
  Serious: No
  Sender: FDA-Public Use
  Company Number: None

PATIENT
  Age: 82 Year
  Sex: Female

DRUGS (1)
  1. CAPECITABINE [Suspect]
     Active Substance: CAPECITABINE
     Dosage: 500MG BID ORAL
     Route: 048
     Dates: start: 202203

REACTIONS (8)
  - Diarrhoea [None]
  - Urinary tract infection [None]
  - Acute kidney injury [None]
  - Abdominal pain [None]
  - Dizziness [None]
  - Ear discomfort [None]
  - Ageusia [None]
  - Off label use [None]

NARRATIVE: CASE EVENT DATE: 20220307
